FAERS Safety Report 4933515-8 (Version None)
Quarter: 2006Q1

REPORT INFORMATION
  Report Type: 
  Country: None (occurrence: None)
  Receive Date: 20060306
  Receipt Date: 20060223
  Transmission Date: 20060701
  Serious: Yes (Hospitalization)
  Sender: FDA-Public Use
  Company Number: NZ-SANOFI-SYNTHELABO-A01200601552

PATIENT
  Sex: Male
  Weight: 123 kg

DRUGS (10)
  1. CLOPIDOGREL [Suspect]
     Indication: PROPHYLAXIS
     Route: 048
     Dates: start: 20050630, end: 20050630
  2. CLOPIDOGREL [Suspect]
     Route: 048
     Dates: start: 20050630, end: 20050630
  3. CLOPIDOGREL [Suspect]
     Route: 048
     Dates: start: 20050701, end: 20050719
  4. CLOPIDOGREL [Suspect]
     Route: 048
     Dates: start: 20050701, end: 20050719
  5. HEPARIN [Suspect]
     Indication: DRUG USE FOR UNKNOWN INDICATION
     Dosage: 4000 UNITS FOLLOWED BY 1500 UNITS UNK
     Route: 042
     Dates: start: 20050630, end: 20050701
  6. TIROFIBAN [Suspect]
     Indication: DRUG USE FOR UNKNOWN INDICATION
     Dosage: 12 MCG FOLLOWED BY 75 MCG UNK
     Route: 042
     Dates: start: 20050630, end: 20050702
  7. ASPIRIN [Concomitant]
     Indication: DRUG USE FOR UNKNOWN INDICATION
     Dosage: UNK
     Route: 065
  8. METOPROLOL [Concomitant]
     Indication: DRUG USE FOR UNKNOWN INDICATION
     Dosage: UNK
     Route: 065
  9. QUINAPRIL [Concomitant]
     Indication: DRUG USE FOR UNKNOWN INDICATION
     Dosage: UNK
     Route: 065
  10. SIMVASTATIN [Concomitant]
     Indication: DRUG USE FOR UNKNOWN INDICATION
     Dosage: UNK
     Route: 065

REACTIONS (3)
  - ANAPHYLACTIC REACTION [None]
  - PRESCRIBED OVERDOSE [None]
  - RASH [None]
